FAERS Safety Report 5962467-7 (Version None)
Quarter: 2008Q4

REPORT INFORMATION
  Report Type: 
  Country: None (occurrence: None)
  Receive Date: 20081121
  Receipt Date: 20081114
  Transmission Date: 20090506
  Serious: Yes (Hospitalization)
  Sender: FDA-Public Use
  Company Number: ES-GENENTECH-271891

PATIENT
  Age: 26 Year
  Sex: Female

DRUGS (5)
  1. RITUXAN [Suspect]
     Indication: NON-HODGKIN'S LYMPHOMA
     Dosage: UNK
     Dates: start: 20061001
  2. CYCLOPHOSPHAMIDE [Concomitant]
     Indication: NON-HODGKIN'S LYMPHOMA
  3. VINCRISTINE [Concomitant]
     Indication: NON-HODGKIN'S LYMPHOMA
  4. PREDNISONE TAB [Concomitant]
     Indication: NON-HODGKIN'S LYMPHOMA
  5. FLUDARABINE PHOSPHATE [Concomitant]
     Indication: NON-HODGKIN'S LYMPHOMA

REACTIONS (1)
  - COLITIS [None]
